FAERS Safety Report 8249124-1 (Version None)
Quarter: 2012Q2

REPORT INFORMATION
  Report Type: 
  Country: None (occurrence: None)
  Receive Date: 20120402
  Receipt Date: 20120329
  Transmission Date: 20120825
  Serious: No
  Sender: FDA-Public Use
  Company Number: US-PFIZER INC-2012069031

PATIENT
  Sex: Female
  Weight: 58.9 kg

DRUGS (4)
  1. LYRICA [Suspect]
     Indication: FIBROMYALGIA
     Dosage: 150 MG, 3X/DAY
     Route: 048
     Dates: start: 20060101, end: 20120301
  2. CYMBALTA [Concomitant]
     Dosage: UNK
  3. SEROQUEL [Concomitant]
     Dosage: UNK
  4. LYRICA [Suspect]
     Indication: PAIN

REACTIONS (9)
  - BLOOD TEST ABNORMAL [None]
  - HYPOKINESIA [None]
  - GAIT DISTURBANCE [None]
  - BODY TEMPERATURE FLUCTUATION [None]
  - WITHDRAWAL SYNDROME [None]
  - PAIN IN EXTREMITY [None]
  - HOT FLUSH [None]
  - HYPERHIDROSIS [None]
  - NAUSEA [None]
